FAERS Safety Report 8496354-X (Version None)
Quarter: 2012Q3

REPORT INFORMATION
  Report Type: 
  Country: None (occurrence: None)
  Receive Date: 20120709
  Receipt Date: 20120706
  Transmission Date: 20120928
  Serious: Yes (Congenital Anomaly)
  Sender: FDA-Public Use
  Company Number: US-GILEAD-2012-0056143

PATIENT
  Sex: Female

DRUGS (5)
  1. ZIDOVUDINE [Suspect]
     Indication: ANTIRETROVIRAL THERAPY
     Dosage: 2 MG/KG, Q1HR
     Route: 064
     Dates: start: 20120522, end: 20120522
  2. REYATAZ [Suspect]
     Indication: HIV INFECTION
     Dosage: 300 MG, QD
     Route: 064
     Dates: start: 20120125
  3. EMTRICITABINE/TENOFOVIR DISOPROXIL FUMARATE [Suspect]
     Indication: HIV INFECTION
     Dosage: 1 DF, QD
     Route: 064
     Dates: start: 20120125
  4. RITONAVIR [Suspect]
     Indication: HIV INFECTION
     Dosage: 100 MG, QD
     Route: 064
     Dates: start: 20120125
  5. ZIDOVUDINE [Suspect]
     Dosage: 1 MG/KG, Q1HR
     Dates: start: 20120522, end: 20120522

REACTIONS (6)
  - SYNDACTYLY [None]
  - PULMONARY HYPERTENSION [None]
  - SINGLE UMBILICAL ARTERY [None]
  - CONGENITAL HAND MALFORMATION [None]
  - VENTRICULAR SEPTAL DEFECT [None]
  - PATENT DUCTUS ARTERIOSUS [None]
